FAERS Safety Report 9410950 (Version 2)
Quarter: 2014Q1

REPORT INFORMATION
  Report Type: Spontaneous
  Country: US (occurrence: US)
  Receive Date: 20130719
  Receipt Date: 20140307
  Transmission Date: 20141002
  Serious: Yes (Hospitalization)
  Sender: FDA-Public Use
  Company Number: US-BAYER-2013-087935

PATIENT
  Age: 32 Year
  Sex: Female
  Weight: 55.33 kg

DRUGS (8)
  1. BEYAZ [Suspect]
     Indication: CONTRACEPTION
     Dosage: UNK
     Dates: start: 201103, end: 201107
  2. BEYAZ [Suspect]
     Indication: PREMENSTRUAL DYSPHORIC DISORDER
  3. YAZ [Suspect]
     Indication: CONTRACEPTION
     Dosage: UNK
     Dates: start: 201102, end: 201103
  4. YAZ [Suspect]
     Indication: PREMENSTRUAL DYSPHORIC DISORDER
  5. FLUCONAZOLE [Concomitant]
     Dosage: UNK
     Dates: start: 2011
  6. ALPRAZOLAM [Concomitant]
     Indication: ANXIETY
     Dosage: 0.5 MG, UNK
     Dates: start: 20110702
  7. CELEXA [Concomitant]
     Dosage: 20 MG, UNK
  8. PERCOCET [Concomitant]

REACTIONS (4)
  - Pulmonary embolism [None]
  - Injury [None]
  - Chest pain [None]
  - Emotional distress [None]
